FAERS Safety Report 6115642-5 (Version None)
Quarter: 2009Q1

REPORT INFORMATION
  Report Type: 
  Country: None (occurrence: None)
  Receive Date: 20090313
  Receipt Date: 20090302
  Transmission Date: 20090719
  Serious: Yes (Other)
  Sender: FDA-Public Use
  Company Number: ES-GENENTECH-278420

PATIENT
  Age: 42 Year
  Sex: Female

DRUGS (5)
  1. XOLAIR [Suspect]
     Indication: ASTHMA
     Dosage: 375 MG, UNK
     Route: 058
     Dates: start: 20080828
  2. CORTICOSTEROIDS (UNK INGREDIENTS) [Concomitant]
     Indication: DRUG USE FOR UNKNOWN INDICATION
  3. SERETIDE [Concomitant]
     Indication: DRUG USE FOR UNKNOWN INDICATION
  4. FORADIL [Concomitant]
     Indication: DRUG USE FOR UNKNOWN INDICATION
  5. ANTIHISTAMINE NOS [Concomitant]
     Indication: DRUG USE FOR UNKNOWN INDICATION

REACTIONS (3)
  - PYREXIA [None]
  - RASH [None]
  - VERTIGO [None]
